FAERS Safety Report 18992455 (Version 1)
Quarter: 2021Q1

REPORT INFORMATION
  Report Type: Spontaneous
  Country: US (occurrence: US)
  Receive Date: 20210310
  Receipt Date: 20210310
  Transmission Date: 20210420
  Serious: No
  Sender: FDA-Public Use
  Company Number: None

PATIENT
  Age: 39 Year
  Sex: Male

DRUGS (1)
  1. PROPOFOL. [Suspect]
     Active Substance: PROPOFOL
     Indication: ACUTE RESPIRATORY DISTRESS SYNDROME

REACTIONS (10)
  - Atrial fibrillation [None]
  - Hepatic enzyme increased [None]
  - Propofol infusion syndrome [None]
  - Alanine aminotransferase increased [None]
  - Hypertriglyceridaemia [None]
  - Aspartate aminotransferase increased [None]
  - Electrocardiogram QRS complex prolonged [None]
  - Blood creatine phosphokinase increased [None]
  - Acute kidney injury [None]
  - Metabolic acidosis [None]

NARRATIVE: CASE EVENT DATE: 20210302
